FAERS Safety Report 8617554 (Version 2)
Quarter: 2014Q1

REPORT INFORMATION
  Report Type: Spontaneous
  Country: US (occurrence: None)
  Receive Date: 20120323
  Receipt Date: 20130305
  Transmission Date: 20141002
  Serious: Yes (Hospitalization)
  Sender: FDA-Public Use
  Company Number: 163-21880-11112652

PATIENT
  Age: 42 Year
  Sex: Male

DRUGS (10)
  1. LENALIDOMIDE [Suspect]
     Indication: PLASMA CELL MYELOMA
     Dosage: 10 MG, X 21 DAYS, PO
     Route: 048
     Dates: start: 20111017
  2. VASOTEC [Concomitant]
  3. ACETAMINOPHEN (PARACETAMOL) [Concomitant]
  4. AYR SALINE NASAL [Concomitant]
  5. PRILOSEC [Concomitant]
  6. PREDNISONE [Concomitant]
  7. NEORAL [Concomitant]
  8. DILTIAZEM HYDROCHLORIDE [Concomitant]
  9. MAGNESIUM SULFATE [Concomitant]
  10. CYCLOSPORINE [Suspect]
     Indication: RENAL TRANSPLANT

REACTIONS (1)
  - Meningitis viral [None]
